FAERS Safety Report 13184972 (Version 1)
Quarter: 2017Q1

REPORT INFORMATION
  Report Type: Spontaneous
  Country: FR (occurrence: FR)
  Receive Date: 20170203
  Receipt Date: 20170203
  Transmission Date: 20170428
  Serious: Yes (Hospitalization, Other)
  Sender: FDA-Public Use
  Company Number: FR-INDIVIOR LIMITED-INDV-098209-2017

PATIENT
  Age: 29 Year
  Sex: Male

DRUGS (5)
  1. SUBOXONE [Suspect]
     Active Substance: BUPRENORPHINE HYDROCHLORIDE\NALOXONE HYDROCHLORIDE
     Indication: PRODUCT USED FOR UNKNOWN INDICATION
     Dosage: UNK, 1 SHOOT
     Route: 042
     Dates: start: 20161123, end: 20161123
  2. LOXAPAC                            /00401801/ [Suspect]
     Active Substance: LOXAPINE SUCCINATE
     Indication: PRODUCT USED FOR UNKNOWN INDICATION
     Dosage: 1 TABLET OF 50MG
     Route: 048
     Dates: start: 20161123, end: 20161123
  3. SUBUTEX [Suspect]
     Active Substance: BUPRENORPHINE HYDROCHLORIDE
     Indication: PRODUCT USED FOR UNKNOWN INDICATION
     Dosage: 1 SHOOT, UNK
     Route: 045
     Dates: start: 20161123, end: 20161123
  4. ALCOHOL. [Suspect]
     Active Substance: ALCOHOL
     Indication: PRODUCT USED FOR UNKNOWN INDICATION
     Dosage: 4 BEERS AND 3 VODKAS
     Route: 065
     Dates: start: 20161123, end: 20161123
  5. CANNABIS [Suspect]
     Active Substance: CANNABIS SATIVA SUBSP. INDICA TOP
     Indication: PRODUCT USED FOR UNKNOWN INDICATION
     Dosage: 3 RESIN JOINTS, UNK
     Route: 055
     Dates: start: 20161123, end: 20161123

REACTIONS (8)
  - Trismus [Recovering/Resolving]
  - Drug abuse [Recovered/Resolved]
  - Dysarthria [Unknown]
  - Tongue movement disturbance [Unknown]
  - Drug dependence [Recovering/Resolving]
  - Alcohol abuse [Recovered/Resolved]
  - Intentional product use issue [Recovered/Resolved]
  - Toxicity to various agents [Unknown]

NARRATIVE: CASE EVENT DATE: 201611
